FAERS Safety Report 6413888-X (Version None)
Quarter: 2009Q4

REPORT INFORMATION
  Report Type: 
  Country: None (occurrence: None)
  Receive Date: 20091026
  Receipt Date: 20091014
  Transmission Date: 20100525
  Serious: Yes (Hospitalization)
  Sender: FDA-Public Use
  Company Number: B0384056A

PATIENT
  Sex: Female
  Weight: 54 kg

DRUGS (7)
  1. LAMICTAL [Suspect]
     Indication: EPILEPSY
     Route: 048
     Dates: start: 20050504, end: 20050517
  2. LEVETIRACETAM [Concomitant]
     Dosage: 1000MG PER DAY
  3. CLONAZEPAM [Concomitant]
     Dosage: 4MG PER DAY
  4. DIPHENYLHYDANTOIN [Concomitant]
  5. PHENOBARBITAL [Concomitant]
  6. DIHYDAN [Concomitant]
     Dosage: 100MG THREE TIMES PER DAY
     Route: 048
  7. ALEPSAL [Concomitant]
     Dosage: 100MG TWICE PER DAY
     Route: 048

REACTIONS (16)
  - ALTERED STATE OF CONSCIOUSNESS [None]
  - CONFUSIONAL STATE [None]
  - CYTOLYTIC HEPATITIS [None]
  - DISORIENTATION [None]
  - DISSEMINATED INTRAVASCULAR COAGULATION [None]
  - DRUG RASH WITH EOSINOPHILIA AND SYSTEMIC SYMPTOMS [None]
  - ENANTHEMA [None]
  - HEPATIC ENZYME INCREASED [None]
  - INFLAMMATION [None]
  - LYMPHOPENIA [None]
  - PANCREATITIS [None]
  - PYREXIA [None]
  - RASH [None]
  - RASH MORBILLIFORM [None]
  - STATUS EPILEPTICUS [None]
  - THROMBOCYTOPENIA [None]
